FAERS Safety Report 8279148-X (Version None)
Quarter: 2012Q2

REPORT INFORMATION
  Report Type: 
  Country: None (occurrence: None)
  Receive Date: 20120412
  Receipt Date: 20110712
  Transmission Date: 20120825
  Serious: No
  Sender: FDA-Public Use
  Company Number: US-ASTRAZENECA-2011SE41318

PATIENT
  Sex: Female

DRUGS (2)
  1. NEXIUM [Suspect]
     Indication: NAUSEA
     Route: 048
  2. NEXIUM [Suspect]
     Indication: CONSTIPATION
     Route: 048

REACTIONS (4)
  - DRUG INEFFECTIVE FOR UNAPPROVED INDICATION [None]
  - OFF LABEL USE [None]
  - NAUSEA [None]
  - CONSTIPATION [None]
